FAERS Safety Report 23586661 (Version 1)
Quarter: 2024Q1

REPORT INFORMATION
  Report Type: Spontaneous
  Country: PT (occurrence: PT)
  Receive Date: 20240301
  Receipt Date: 20240301
  Transmission Date: 20240410
  Serious: Yes (Hospitalization, Other)
  Sender: FDA-Public Use
  Company Number: PT-002147023-NVSC2023PT070219

PATIENT
  Age: 48 Year
  Sex: Female

DRUGS (7)
  1. AMOXICILLIN [Suspect]
     Active Substance: AMOXICILLIN
     Indication: Helicobacter gastritis
     Dosage: 1 G (1 GRAM)
     Route: 065
  2. AZITHROMYCIN [Concomitant]
     Active Substance: AZITHROMYCIN
     Indication: Product used for unknown indication
     Dosage: 500 MG, TIW (1500 MG, QW, 500 MILLIGRAM, 3XW)
     Route: 065
  3. CLARITHROMYCIN [Interacting]
     Active Substance: CLARITHROMYCIN
     Indication: Helicobacter gastritis
     Dosage: 500 MG
     Route: 065
  4. EVEROLIMUS [Interacting]
     Active Substance: EVEROLIMUS
     Indication: Lung transplant
     Dosage: UNK
     Route: 065
     Dates: start: 2016
  5. EVEROLIMUS [Interacting]
     Active Substance: EVEROLIMUS
     Indication: Immunosuppressant drug therapy
  6. TACROLIMUS [Interacting]
     Active Substance: TACROLIMUS
     Indication: Lung transplant
     Dosage: UNK
     Route: 065
     Dates: start: 2016
  7. TACROLIMUS [Interacting]
     Active Substance: TACROLIMUS
     Indication: Immunosuppressant drug therapy

REACTIONS (8)
  - Thrombocytopenia [Recovering/Resolving]
  - Acute kidney injury [Recovering/Resolving]
  - Hypertension [Unknown]
  - Ecchymosis [Recovered/Resolved]
  - Asthenia [Unknown]
  - Drug level abnormal [Recovering/Resolving]
  - Drug interaction [Unknown]
  - Product use in unapproved indication [Unknown]
